FAERS Safety Report 6473329-3 (Version None)
Quarter: 2009Q4

REPORT INFORMATION
  Report Type: 
  Country: None (occurrence: None)
  Receive Date: 20091204
  Receipt Date: 20080930
  Transmission Date: 20100525
  Serious: Yes (Hospitalization, Other)
  Sender: FDA-Public Use
  Company Number: CA-ELI_LILLY_AND_COMPANY-CA200806003706

PATIENT
  Sex: Male
  Weight: 62.2 kg

DRUGS (8)
  1. GEMZAR [Suspect]
     Indication: LUNG ADENOCARCINOMA STAGE IV
     Dosage: 2075 MG, DAYS 1 + 8 EVERY 21 DAYS OVER 30 MINUTES
     Route: 042
     Dates: start: 20080515, end: 20080605
  2. CARBOPLATIN [Concomitant]
     Indication: LUNG ADENOCARCINOMA STAGE IV
     Dosage: 500 MG, AUC 5, DAY 1 EVERY 21 DAYS, OVER 60 MINUTES
     Dates: start: 20080101
  3. ONDANSETRON [Concomitant]
     Dosage: 8 MG,ONE TABLET 30 MIN. BEFORE CHEMO AND ONE TABLET AT BEDTIME AFTER CHEMO
     Route: 048
     Dates: start: 20080605, end: 20080605
  4. DEXAMETHASONE TAB [Concomitant]
     Dosage: 4 MG, 2/D FOR FIVE DOSES AFTER CHEMO
     Route: 048
     Dates: start: 20080605, end: 20080605
  5. DEXAMETHASONE TAB [Concomitant]
     Dosage: 10 MG, 30 MINUTES BEFORE CHEMO
     Route: 042
  6. PROCHLORPERAZINE [Concomitant]
     Dosage: 10 MG, AS NEEDED EVERY 4-6 HRS
  7. LORAZEPAM [Concomitant]
     Dosage: 1 MG, AS NEEDED QHS
     Route: 048
  8. SENOKOT [Concomitant]

REACTIONS (8)
  - CYANOSIS [None]
  - HEADACHE [None]
  - HYPOAESTHESIA [None]
  - OEDEMA PERIPHERAL [None]
  - PAIN [None]
  - PERIPHERAL COLDNESS [None]
  - PLATELET COUNT INCREASED [None]
  - POOR PERIPHERAL CIRCULATION [None]
